FAERS Safety Report 10228392 (Version 1)
Quarter: 2014Q2

REPORT INFORMATION
  Report Type: Spontaneous
  Country: US (occurrence: None)
  Receive Date: 20140505
  Receipt Date: 20140505
  Transmission Date: 20141212
  Serious: No
  Sender: FDA-Public Use
  Company Number: US-015270

PATIENT
  Sex: Male

DRUGS (1)
  1. PICO-SALAX (NOT SPECIFIED) [Suspect]
     Indication: PRODUCT USED FOR UNKNOWN INDICATION
     Dosage: FIRST PACKET: AM ORAL
     Route: 048
     Dates: start: 20140409

REACTIONS (2)
  - Dizziness [None]
  - Headache [None]
